FAERS Safety Report 25854016 (Version 3)
Quarter: 2025Q4

REPORT INFORMATION
  Report Type: Spontaneous
  Country: CL (occurrence: CL)
  Receive Date: 20250926
  Receipt Date: 20251229
  Transmission Date: 20260117
  Serious: Yes (Hospitalization, Other)
  Sender: VERTEX
  Company Number: CL-VERTEX PHARMACEUTICALS-2025-015891

PATIENT
  Age: 10 Year
  Sex: Female

DRUGS (6)
  1. TRIKAFTA [Suspect]
     Active Substance: ELEXACAFTOR\IVACAFTOR\TEZACAFTOR
     Indication: Cystic fibrosis
     Dosage: 2 ORANGE TABLETS IN MORNING AND 1 BLUE TABLET IN EVENING
     Route: 061
     Dates: start: 20230721, end: 202508
  2. TRIKAFTA [Suspect]
     Active Substance: ELEXACAFTOR\IVACAFTOR\TEZACAFTOR
     Dosage: 2 ORANGE TABLETS IN MORNING AND 1 BLUE TABLET IN EVENING
     Route: 061
     Dates: start: 20251201
  3. FLUTICASONE PROPIONATE\SALMETEROL XINAFOATE [Concomitant]
     Active Substance: FLUTICASONE PROPIONATE\SALMETEROL XINAFOATE
  4. ALBUTEROL [Concomitant]
     Active Substance: ALBUTEROL
  5. LEVOCETIRIZINE [Concomitant]
     Active Substance: LEVOCETIRIZINE
  6. AZITHROMYCIN [Concomitant]
     Active Substance: AZITHROMYCIN

REACTIONS (3)
  - Bone marrow failure [Not Recovered/Not Resolved]
  - Hospitalisation [Unknown]
  - Pancytopenia [Not Recovered/Not Resolved]

NARRATIVE: CASE EVENT DATE: 20250801
